FAERS Safety Report 9060301 (Version 1)
Quarter: 2013Q1

REPORT INFORMATION
  Report Type: Spontaneous
  Country: US (occurrence: None)
  Receive Date: 20130207
  Receipt Date: 20130207
  Transmission Date: 20140127
  Serious: Yes (Hospitalization, Other)
  Sender: FDA-Public Use
  Company Number: None

PATIENT
  Age: 68 Year
  Sex: Female
  Weight: 97.07 kg

DRUGS (1)
  1. DELESTROGEN 10MG/ML USE BY INJECTION [Suspect]
     Indication: MENOPAUSE
     Dosage: MANY YEARS

REACTIONS (1)
  - Cerebrovascular accident [None]
